FAERS Safety Report 8809196 (Version 2)
Quarter: 2012Q4

REPORT INFORMATION
  Report Type: 
  Country: FR (occurrence: FR)
  Receive Date: 20120926
  Receipt Date: 20121009
  Transmission Date: 20130627
  Serious: Yes (Hospitalization, Other)
  Sender: FDA-Public Use
  Company Number: FR-PFIZER INC-2012231871

PATIENT
  Age: 49 Year
  Sex: Male
  Weight: 72 kg

DRUGS (4)
  1. TORISEL [Suspect]
     Dosage: 100 mg, UNK
     Route: 042
     Dates: start: 20120813, end: 20120824
  2. KIDROLASE [Suspect]
     Dosage: 20000 IU, alternate day
     Route: 042
     Dates: start: 20120813, end: 20120824
  3. MABTHERA [Suspect]
     Dosage: 750 mg, weekly
     Dates: start: 20120813, end: 20120820
  4. LEPTICUR [Concomitant]
     Dosage: UNK, 2X/day (one in morning one in evening)

REACTIONS (13)
  - Cerebral thrombosis [Not Recovered/Not Resolved]
  - Convulsion [Unknown]
  - Febrile neutropenia [Unknown]
  - Lymphopenia [Unknown]
  - Thrombocytopenia [Unknown]
  - Blood fibrinogen decreased [Unknown]
  - Hypokalaemia [Recovered/Resolved]
  - Hypoproteinaemia [Unknown]
  - Hypocalcaemia [Unknown]
  - Hypophosphataemia [Unknown]
  - Liver function test abnormal [Unknown]
  - Hypertriglyceridaemia [Unknown]
  - Blood thyroid stimulating hormone decreased [Unknown]
